FAERS Safety Report 10328477 (Version 3)
Quarter: 2015Q1

REPORT INFORMATION
  Report Type: Other
  Country: US (occurrence: US)
  Receive Date: 20140721
  Receipt Date: 20150319
  Transmission Date: 20150720
  Serious: Yes (Other)
  Sender: FDA-Public Use
  Company Number: US-GSKPPD-2014GSK002692

PATIENT
  Sex: Male

DRUGS (8)
  1. AVANDIA [Suspect]
     Active Substance: ROSIGLITAZONE MALEATE
     Indication: DIABETES MELLITUS
     Route: 048
     Dates: start: 200111, end: 200706
  2. NITROGLYCERIN. [Concomitant]
     Active Substance: NITROGLYCERIN
  3. PRAZOSIN [Concomitant]
     Active Substance: PRAZOSIN
     Dosage: 10/40MG
  4. LABETALOL [Concomitant]
     Active Substance: LABETALOL\LABETALOL HYDROCHLORIDE
  5. LASIX [Concomitant]
     Active Substance: FUROSEMIDE
  6. TOPROL XL [Concomitant]
     Active Substance: METOPROLOL SUCCINATE
  7. ASPIRIN. [Concomitant]
     Active Substance: ASPIRIN
  8. HYDRALAZINE [Concomitant]
     Active Substance: HYDRALAZINE HYDROCHLORIDE

REACTIONS (1)
  - Cardiac failure congestive [Unknown]
